FAERS Safety Report 5764969-5 (Version None)
Quarter: 2008Q2

REPORT INFORMATION
  Report Type: 
  Country: None (occurrence: None)
  Receive Date: 20080611
  Receipt Date: 20080609
  Transmission Date: 20081010
  Serious: Yes (Hospitalization)
  Sender: FDA-Public Use
  Company Number: B0524254A

PATIENT
  Age: 44 Year
  Sex: Female

DRUGS (3)
  1. SAWACILLIN [Suspect]
     Indication: STREPTOCOCCAL INFECTION
     Dosage: 750MG PER DAY
     Route: 048
     Dates: start: 20080430, end: 20080506
  2. TRANSAMIN [Concomitant]
     Indication: STREPTOCOCCAL INFECTION
     Dosage: 750MG PER DAY
     Route: 048
  3. MUCODYNE [Concomitant]

REACTIONS (3)
  - DIARRHOEA [None]
  - ENTEROCOLITIS HAEMORRHAGIC [None]
  - MELAENA [None]
